FAERS Safety Report 6142296-4 (Version None)
Quarter: 2009Q2

REPORT INFORMATION
  Report Type: 
  Country: None (occurrence: None)
  Receive Date: 20090403
  Receipt Date: 20090331
  Transmission Date: 20091009
  Serious: Yes (Other)
  Sender: FDA-Public Use
  Company Number: US-PFIZER INC-2005086788

PATIENT
  Sex: Female

DRUGS (19)
  1. PROVERA [Suspect]
     Indication: HORMONE REPLACEMENT THERAPY
     Dosage: UNK
     Route: 048
     Dates: start: 19911201, end: 19960101
  2. PROVERA [Suspect]
     Indication: MENOPAUSAL SYMPTOMS
  3. OGEN [Suspect]
     Indication: HORMONE REPLACEMENT THERAPY
     Route: 048
     Dates: start: 19900101, end: 20020101
  4. OGEN [Suspect]
     Indication: MENOPAUSAL SYMPTOMS
  5. ESTRADERM [Suspect]
     Indication: HORMONE REPLACEMENT THERAPY
     Dosage: UNK
     Route: 065
     Dates: start: 19901201, end: 19920101
  6. ESTRADERM [Suspect]
     Indication: MENOPAUSAL SYMPTOMS
  7. ESTRATEST [Suspect]
     Indication: HORMONE REPLACEMENT THERAPY
     Route: 065
     Dates: start: 19900101, end: 20020101
  8. CYCRIN [Suspect]
     Indication: HORMONE REPLACEMENT THERAPY
     Dosage: UNK
     Route: 065
     Dates: start: 19920101, end: 20020101
  9. CYCRIN [Suspect]
     Indication: MENOPAUSAL SYMPTOMS
  10. ESTRACE [Suspect]
     Indication: HORMONE REPLACEMENT THERAPY
     Dosage: UNK
     Route: 065
     Dates: start: 19930101, end: 19960101
  11. ESTRACE [Suspect]
     Indication: MENOPAUSAL SYMPTOMS
  12. PREMARIN [Suspect]
     Indication: HORMONE REPLACEMENT THERAPY
     Dosage: UNK
     Route: 048
     Dates: start: 19930701, end: 20020101
  13. PREMARIN [Suspect]
     Indication: MENOPAUSAL SYMPTOMS
  14. PREMPHASE 14/14 [Suspect]
     Indication: HORMONE REPLACEMENT THERAPY
     Dosage: UNK
     Route: 065
     Dates: start: 19960101, end: 19981001
  15. PREMPHASE 14/14 [Suspect]
     Indication: MENOPAUSAL SYMPTOMS
  16. PREMPRO [Suspect]
     Indication: HORMONE REPLACEMENT THERAPY
     Dosage: UNK
     Dates: start: 20011201, end: 20020101
  17. PREMPRO [Suspect]
     Indication: MENOPAUSAL SYMPTOMS
  18. PAXIL [Concomitant]
     Indication: DEPRESSION
     Dosage: 20 MG, 2X/DAY
     Dates: start: 19940101
  19. XANAX [Concomitant]
     Indication: DEPRESSION
     Dosage: 0.5 MG, UNK
     Dates: start: 19940101

REACTIONS (1)
  - BREAST CANCER [None]
